FAERS Safety Report 9801685 (Version 1)
Quarter: 2014Q1

REPORT INFORMATION
  Report Type: Spontaneous
  Country: US (occurrence: US)
  Receive Date: 20140107
  Receipt Date: 20140107
  Transmission Date: 20141002
  Serious: Yes (Other)
  Sender: FDA-Public Use
  Company Number: US-ASTRAZENECA-2014SE00088

PATIENT
  Age: 71 Year
  Sex: Male
  Weight: 68 kg

DRUGS (4)
  1. SYMBICORT [Suspect]
     Indication: EMPHYSEMA
     Dosage: 320MCG TWO PUFFS BID
     Route: 055
     Dates: start: 2008, end: 2013
  2. SYMBICORT [Suspect]
     Indication: EMPHYSEMA
     Dosage: 4 PUFFS BID
     Route: 055
     Dates: start: 2013, end: 2013
  3. SYMBICORT [Suspect]
     Indication: EMPHYSEMA
     Dosage: 320 MCG 2 PUFFS BID
     Route: 055
     Dates: start: 2013
  4. FUROSEMIDE [Concomitant]
     Indication: DIURETIC THERAPY
     Route: 048

REACTIONS (6)
  - Myocardial infarction [Unknown]
  - Pulmonary oedema [Recovered/Resolved]
  - Lower respiratory tract infection [Recovered/Resolved]
  - Local swelling [Not Recovered/Not Resolved]
  - Chest discomfort [Unknown]
  - Off label use [Unknown]
